FAERS Safety Report 7459333-7 (Version None)
Quarter: 2011Q2

REPORT INFORMATION
  Report Type: 
  Country: None (occurrence: None)
  Receive Date: 20110504
  Receipt Date: 20110504
  Transmission Date: 20111010
  Serious: Yes (Disabling, Other)
  Sender: FDA-Public Use
  Company Number: None

PATIENT
  Sex: Female
  Weight: 70.7611 kg

DRUGS (1)
  1. ALDARA [Suspect]
     Indication: VULVOVAGINAL HUMAN PAPILLOMA VIRUS INFECTION
     Dosage: 3 X A WK OINTMENT
     Dates: start: 20090701, end: 20090707

REACTIONS (6)
  - RASH [None]
  - NO THERAPEUTIC RESPONSE [None]
  - PRODUCT QUALITY ISSUE [None]
  - VULVAL CANCER [None]
  - NEOPLASM MALIGNANT [None]
  - HAEMORRHAGE [None]
